FAERS Safety Report 7992466-5 (Version None)
Quarter: 2011Q4

REPORT INFORMATION
  Report Type: 
  Country: None (occurrence: None)
  Receive Date: 20111219
  Receipt Date: 20111217
  Transmission Date: 20120403
  Serious: Yes (Death, Other)
  Sender: FDA-Public Use
  Company Number: PHHY2011PK109827

PATIENT
  Age: 76 Year
  Sex: Male

DRUGS (3)
  1. ZOLEDRONOC ACID [Suspect]
     Indication: OSTEOPOROSIS
     Dosage: 5 MG,/100 ML YEARLY
     Route: 042
     Dates: start: 20080101
  2. ZOLEDRONOC ACID [Suspect]
     Dosage: 5 MG,/100 ML YEARLY
     Route: 042
     Dates: start: 20101221
  3. ZOLEDRONOC ACID [Suspect]
     Dosage: 5 MG,/100 ML YEARLY
     Route: 042
     Dates: start: 20090101

REACTIONS (2)
  - POST PROCEDURAL COMPLICATION [None]
  - FEMUR FRACTURE [None]
